FAERS Safety Report 21334825 (Version 2)
Quarter: 2023Q4

REPORT INFORMATION
  Report Type: Report from Study
  Country: US (occurrence: US)
  Receive Date: 20220914
  Receipt Date: 20231120
  Transmission Date: 20240110
  Serious: Yes (Other)
  Sender: FDA-Public Use
  Company Number: US-KOREA IPSEN Pharma-2022-25655

PATIENT
  Age: 52 Year
  Sex: Male

DRUGS (1)
  1. SOMATULINE DEPOT [Suspect]
     Active Substance: LANREOTIDE ACETATE
     Indication: Carcinoid tumour
     Dosage: 120MG SQ BUTTOCKS
     Route: 058
     Dates: start: 201610

REACTIONS (11)
  - Diabetes mellitus [Unknown]
  - COVID-19 [Unknown]
  - Mouth swelling [Unknown]
  - Lip swelling [Unknown]
  - Intervertebral disc protrusion [Unknown]
  - Thyroxine decreased [Unknown]
  - Nasopharyngitis [Unknown]
  - Feeling hot [Unknown]
  - Hyperhidrosis [Unknown]
  - Heart rate decreased [Unknown]
  - Serum serotonin increased [Not Recovered/Not Resolved]

NARRATIVE: CASE EVENT DATE: 20200101
